FAERS Safety Report 7940846-6 (Version None)
Quarter: 2011Q4

REPORT INFORMATION
  Report Type: 
  Country: None (occurrence: None)
  Receive Date: 20111122
  Receipt Date: 20111107
  Transmission Date: 20120403
  Serious: Yes (Other)
  Sender: FDA-Public Use
  Company Number: 2011P1010173

PATIENT
  Age: 2 Year
  Sex: Female

DRUGS (1)
  1. VALPROATE SODIUM [Suspect]
     Indication: CONVULSION

REACTIONS (5)
  - NONKETOTIC HYPERGLYCINAEMIA [None]
  - CONDITION AGGRAVATED [None]
  - DEVELOPMENTAL COORDINATION DISORDER [None]
  - METABOLIC DISORDER [None]
  - CONVULSION [None]
